FAERS Safety Report 4350711-1 (Version None)
Quarter: 2004Q2

REPORT INFORMATION
  Report Type: 
  Country: None (occurrence: None)
  Receive Date: 20040430
  Receipt Date: 20040213
  Transmission Date: 20050107
  Serious: Yes (Other)
  Sender: FDA-Public Use
  Company Number: US-MERCK-0402USA01115

PATIENT
  Age: 54 Year
  Sex: Male
  Weight: 75 kg

DRUGS (4)
  1. VIOXX [Suspect]
     Indication: MENISCUS LESION
     Route: 048
     Dates: start: 20031221, end: 20040201
  2. VIOXX [Suspect]
     Route: 065
     Dates: start: 20030101, end: 20030101
  3. VIOXX [Suspect]
     Indication: PAIN
     Route: 048
     Dates: start: 20031221, end: 20040201
  4. VIOXX [Suspect]
     Route: 065
     Dates: start: 20030101, end: 20030101

REACTIONS (3)
  - ARTHROPATHY [None]
  - JOINT INJURY [None]
  - RASH [None]
